FAERS Safety Report 19706804 (Version 3)
Quarter: 2023Q4

REPORT INFORMATION
  Report Type: Spontaneous
  Country: US (occurrence: US)
  Receive Date: 20210817
  Receipt Date: 20231108
  Transmission Date: 20240110
  Serious: Yes (Hospitalization, Other)
  Sender: FDA-Public Use
  Company Number: US-PFIZER INC-202101014063

PATIENT
  Age: 54 Year
  Sex: Female

DRUGS (7)
  1. ATORVASTATIN CALCIUM [Interacting]
     Active Substance: ATORVASTATIN CALCIUM
     Indication: Product used for unknown indication
     Dosage: 80 MILLIGRAM, QD (80 MG, DAILY)
     Route: 065
  2. DAPTOMYCIN [Interacting]
     Active Substance: DAPTOMYCIN
     Indication: Skin infection
     Dosage: 750 MILLIGRAM, QD (750 MG, DAILY)
     Route: 065
  3. DAPTOMYCIN [Interacting]
     Active Substance: DAPTOMYCIN
     Indication: Soft tissue infection
  4. DAPTOMYCIN [Interacting]
     Active Substance: DAPTOMYCIN
     Indication: Staphylococcal infection
  5. DAPTOMYCIN [Interacting]
     Active Substance: DAPTOMYCIN
     Indication: Enterococcal infection
  6. DAPTOMYCIN [Interacting]
     Active Substance: DAPTOMYCIN
     Indication: Osteomyelitis
  7. LEFLUNOMIDE [Interacting]
     Active Substance: LEFLUNOMIDE
     Indication: Psoriatic arthropathy
     Dosage: UNK
     Route: 065

REACTIONS (3)
  - Drug interaction [Recovering/Resolving]
  - Rhabdomyolysis [Recovering/Resolving]
  - Off label use [Unknown]
